FAERS Safety Report 7367815-1 (Version None)
Quarter: 2011Q1

REPORT INFORMATION
  Report Type: 
  Country: None (occurrence: None)
  Receive Date: 20110322
  Receipt Date: 20110311
  Transmission Date: 20110831
  Serious: Yes (Other)
  Sender: FDA-Public Use
  Company Number: US-PFIZER INC-2005133925

PATIENT
  Sex: Female

DRUGS (7)
  1. NAPROXEN SODIUM [Suspect]
     Route: 065
  2. BEXTRA [Concomitant]
     Indication: ARTHRITIS
     Dosage: 20 MG, 1 IN 1 DAY
     Route: 065
  3. ACETYLSALICYLIC ACID [Suspect]
     Indication: ARTHRITIS
     Route: 065
  4. CELEBREX [Concomitant]
     Indication: ARTHRITIS
     Dosage: UNK
     Route: 065
  5. IBUPROFEN [Suspect]
     Indication: ARTHRITIS
     Route: 065
  6. FLURBIPROFEN [Suspect]
     Route: 065
  7. MOBIC [Concomitant]
     Dosage: UNK
     Route: 065

REACTIONS (3)
  - DRUG INEFFECTIVE [None]
  - ARTHRITIS [None]
  - COLITIS COLLAGENOUS [None]
